FAERS Safety Report 14029009 (Version 1)
Quarter: 2017Q3

REPORT INFORMATION
  Report Type: Spontaneous
  Country: US (occurrence: US)
  Receive Date: 20170930
  Receipt Date: 20170930
  Transmission Date: 20171128
  Serious: Yes (Other)
  Sender: FDA-Public Use
  Company Number: US-SA-2017SA080250

PATIENT
  Sex: Female

DRUGS (14)
  1. BIOTIN [Concomitant]
     Active Substance: BIOTIN
  2. SODIUM CHLORIDE. [Concomitant]
     Active Substance: SODIUM CHLORIDE
     Dosage: SOL; IRR
  3. AUBAGIO [Suspect]
     Active Substance: TERIFLUNOMIDE
     Indication: MULTIPLE SCLEROSIS
     Route: 048
  4. SULFAMETHOXAZOLE [Concomitant]
     Active Substance: SULFAMETHOXAZOLE
     Dosage: POW
  5. MORPHINE SULFATE. [Concomitant]
     Active Substance: MORPHINE SULFATE
  6. ASPIRIN. [Concomitant]
     Active Substance: ASPIRIN
  7. SOLU-MEDROL [Concomitant]
     Active Substance: METHYLPREDNISOLONE SODIUM SUCCINATE
  8. BLACK COHOSH [Concomitant]
     Active Substance: BLACK COHOSH
  9. COLACE [Concomitant]
     Active Substance: DOCUSATE SODIUM
  10. FERROUS SULFATE. [Concomitant]
     Active Substance: FERROUS SULFATE
  11. METOPROLOL. [Concomitant]
     Active Substance: METOPROLOL
     Dosage: ER
  12. BACLOFEN. [Concomitant]
     Active Substance: BACLOFEN
  13. CLONIDINE. [Concomitant]
     Active Substance: CLONIDINE
  14. CALCIUM PLUS VITAMIN D3 [Concomitant]
     Dosage: 600-800

REACTIONS (2)
  - Multiple sclerosis relapse [Recovered/Resolved]
  - Drug ineffective [Unknown]
